FAERS Safety Report 7909167-1 (Version None)
Quarter: 2011Q4

REPORT INFORMATION
  Report Type: 
  Country: None (occurrence: None)
  Receive Date: 20111111
  Receipt Date: 20110425
  Transmission Date: 20120403
  Serious: No
  Sender: FDA-Public Use
  Company Number: US-GLAXOSMITHKLINE-A0924409A

PATIENT
  Sex: Female

DRUGS (8)
  1. COUMADIN [Concomitant]
  2. FUROSEMIDE [Concomitant]
  3. SYNTHROID [Concomitant]
  4. ENALAPRIL MALEATE [Concomitant]
  5. COREG [Suspect]
     Indication: CARDIAC DISORDER
     Dosage: 12.5MG TWICE PER DAY
     Route: 048
  6. DIGOXIN [Concomitant]
  7. SPIRONOLACTONE [Concomitant]
  8. XANAX [Concomitant]

REACTIONS (1)
  - DIARRHOEA [None]
